FAERS Safety Report 7580638-3 (Version None)
Quarter: 2011Q2

REPORT INFORMATION
  Report Type: 
  Country: None (occurrence: None)
  Receive Date: 20110620
  Receipt Date: 20110606
  Transmission Date: 20111010
  Serious: Yes (Other)
  Sender: FDA-Public Use
  Company Number: 2011028823

PATIENT
  Age: 66 Year
  Sex: Male
  Weight: 74.8435 kg

DRUGS (12)
  1. HIZENTRA [Suspect]
     Indication: IMMUNODEFICIENCY COMMON VARIABLE
     Dosage: (15 G 1X/WEEK, INFUSED 75 ML VIA 4 SITES OVER 1 HOUR 17 MINUTES SUBCUTANEOUS), ()
     Dates: start: 20110223
  2. HIZENTRA [Suspect]
     Indication: IMMUNODEFICIENCY COMMON VARIABLE
     Dosage: (15 G 1X/WEEK, INFUSED 75 ML VIA 4 SITES OVER 1 HOUR 17 MINUTES SUBCUTANEOUS), ()
     Dates: start: 20110523
  3. HIZENTRA [Suspect]
  4. ADVAIR DISKUS 100/50 [Concomitant]
  5. LEVOTHYROXINE SODIUM [Concomitant]
  6. ALLOPURINOL [Concomitant]
  7. ATROVENT [Concomitant]
  8. PRAVASTATIN [Concomitant]
  9. LISINOPRIL [Concomitant]
  10. HIZENTRA [Suspect]
  11. ASPIRIN [Concomitant]
  12. ALBUTEROL [Concomitant]

REACTIONS (1)
  - RESPIRATORY TRACT INFECTION [None]
